FAERS Safety Report 8371397-5 (Version None)
Quarter: 2012Q2

REPORT INFORMATION
  Report Type: 
  Country: None (occurrence: None)
  Receive Date: 20120518
  Receipt Date: 20120507
  Transmission Date: 20120825
  Serious: Yes (Other)
  Sender: FDA-Public Use
  Company Number: DE-AMGEN-DEUCT2011068139

PATIENT
  Age: 55 Year
  Sex: Female
  Weight: 40 kg

DRUGS (7)
  1. CORTISONE ACETATE [Concomitant]
     Dosage: 80 MG, UNK
  2. PREDNISOLONE [Concomitant]
     Indication: POLYARTHRITIS
     Dosage: 40 MG, 1X/DAY
     Route: 048
     Dates: start: 20111101
  3. ENBREL [Suspect]
     Indication: RHEUMATOID ARTHRITIS
     Dosage: 50 MG, ONCE WEEKLY
     Route: 058
     Dates: start: 20091120, end: 20120102
  4. IBUPROFEN [Concomitant]
     Dosage: 400 MG, QD
     Dates: start: 20111201
  5. CAPRIMIDA D FORTE [Concomitant]
     Dosage: UNK
  6. SYMBICORT [Concomitant]
     Indication: ASTHMA
     Dosage: 160/4.5 TWICE DAILY
  7. ENBREL [Suspect]
     Indication: PSORIATIC ARTHROPATHY
     Dosage: UNK

REACTIONS (6)
  - INFECTION [None]
  - DRUG INEFFECTIVE [None]
  - WEIGHT DECREASED [None]
  - JAW DISORDER [None]
  - GASTROINTESTINAL INFLAMMATION [None]
  - ABDOMINAL DISCOMFORT [None]
